FAERS Safety Report 10757571 (Version 4)
Quarter: 2015Q4

REPORT INFORMATION
  Report Type: Spontaneous
  Country: US (occurrence: US)
  Receive Date: 20150203
  Receipt Date: 20151012
  Transmission Date: 20160304
  Serious: Yes (Hospitalization, Other)
  Sender: FDA-Public Use
  Company Number: US-BAYER-2015-014721

PATIENT
  Age: 31 Year
  Sex: Female
  Weight: 61.22 kg

DRUGS (2)
  1. MIRENA [Suspect]
     Active Substance: LEVONORGESTREL
     Indication: CONTRACEPTION
     Dosage: 20 MCG/24HR, CONT
     Route: 015
     Dates: start: 201012, end: 20130809
  2. IBUPROFEN. [Concomitant]
     Active Substance: IBUPROFEN

REACTIONS (10)
  - Maternal exposure before pregnancy [None]
  - Injury [None]
  - Depression [None]
  - Emotional distress [None]
  - Scar [None]
  - Abdominal pain [None]
  - Abortion spontaneous [None]
  - Anxiety [None]
  - Uterine perforation [None]
  - Back pain [None]

NARRATIVE: CASE EVENT DATE: 201304
